FAERS Safety Report 8250106-4 (Version None)
Quarter: 2012Q2

REPORT INFORMATION
  Report Type: 
  Country: None (occurrence: None)
  Receive Date: 20120402
  Receipt Date: 20120327
  Transmission Date: 20120825
  Serious: Yes (Life-Threatening, Other)
  Sender: FDA-Public Use
  Company Number: ES-ASTRAZENECA-2012SE19631

PATIENT
  Age: 65 Year
  Sex: Female
  Weight: 97 kg

DRUGS (7)
  1. DESCLORPHENIRAMINE [Concomitant]
  2. ADRENALIN IN OIL INJ [Concomitant]
  3. IPRATROPIUM BROMIDE [Concomitant]
     Route: 055
  4. VIMOVO [Suspect]
     Indication: SPINAL OSTEOARTHRITIS
     Route: 048
     Dates: start: 20120131, end: 20120131
  5. HYDROCORTISONE [Concomitant]
  6. ALBUTEROL [Concomitant]
     Route: 055
  7. BALZAK PLUS [Concomitant]

REACTIONS (5)
  - WHEEZING [None]
  - FLUSHING [None]
  - DYSPNOEA [None]
  - DRUG HYPERSENSITIVITY [None]
  - FACE OEDEMA [None]
